FAERS Safety Report 18898228 (Version 1)
Quarter: 2021Q1

REPORT INFORMATION
  Report Type: Spontaneous
  Country: US (occurrence: US)
  Receive Date: 20210213
  Receipt Date: 20210213
  Transmission Date: 20210420
  Serious: Yes (Hospitalization)
  Sender: FDA-Public Use
  Company Number: None

PATIENT
  Age: 73 Year
  Sex: Male
  Weight: 135.9 kg

DRUGS (1)
  1. ABIRATERONE ACETATE. [Suspect]
     Active Substance: ABIRATERONE ACETATE
     Dates: start: 20201209

REACTIONS (8)
  - Cholelithiasis [None]
  - Haematochezia [None]
  - Acute kidney injury [None]
  - Metastatic neoplasm [None]
  - Nephropathy [None]
  - Tachycardia [None]
  - Pancreatitis acute [None]
  - Hydronephrosis [None]

NARRATIVE: CASE EVENT DATE: 20201218
